FAERS Safety Report 21177880 (Version 1)
Quarter: 2022Q3

REPORT INFORMATION
  Report Type: Spontaneous
  Country: US (occurrence: US)
  Receive Date: 20220805
  Receipt Date: 20220805
  Transmission Date: 20221027
  Serious: No
  Sender: FDA-Public Use
  Company Number: US-PFIZER INC-202201034561

PATIENT
  Sex: Female

DRUGS (1)
  1. LATANOPROST [Suspect]
     Active Substance: LATANOPROST
     Indication: Glaucoma
     Dosage: 1 DROP, 1X/DAY (ONE DROP IN EACH EYE)
     Route: 047
     Dates: start: 202207, end: 202207

REACTIONS (1)
  - Eye injury [Unknown]

NARRATIVE: CASE EVENT DATE: 20220701
